FAERS Safety Report 23579713 (Version 1)
Quarter: 2024Q1

REPORT INFORMATION
  Report Type: Spontaneous
  Country: US (occurrence: US)
  Receive Date: 20240229
  Receipt Date: 20240229
  Transmission Date: 20240410
  Serious: Yes (Other)
  Sender: FDA-Public Use
  Company Number: US-SUN PHARMACEUTICAL INDUSTRIES LTD-2024R1-433686

PATIENT
  Age: 20 Year
  Sex: Male

DRUGS (1)
  1. ASPIRIN [Suspect]
     Active Substance: ASPIRIN
     Indication: Product used for unknown indication
     Dosage: 31.200MG
     Route: 065

REACTIONS (8)
  - Asthenia [Unknown]
  - Confusional state [Unknown]
  - Deafness [Unknown]
  - Nausea [Unknown]
  - Somnolence [Unknown]
  - Tinnitus [Unknown]
  - Toxicity to various agents [Unknown]
  - Vomiting [Unknown]
